FAERS Safety Report 8897658 (Version 1)
Quarter: 2012Q4

REPORT INFORMATION
  Report Type: 
  Country: US (occurrence: US)
  Receive Date: 20121108
  Receipt Date: 20121108
  Transmission Date: 20130627
  Serious: No
  Sender: FDA-Public Use
  Company Number: US-AMGEN-USASP2012038763

PATIENT
  Age: 62 Year
  Sex: Female
  Weight: 165.53 kg

DRUGS (12)
  1. ENBREL [Suspect]
     Indication: PRODUCT USED FOR UNKNOWN INDICATION
     Dosage: UNK
     Route: 058
  2. SINGULAIR [Concomitant]
     Dosage: 4 mg, UNK
  3. PROVENTIL                          /00139501/ [Concomitant]
     Dosage: 90 mug, UNK
  4. LEFLUNOMIDE [Concomitant]
     Dosage: 10 mg, UNK
  5. LISINOPRIL [Concomitant]
     Dosage: 2.5 mg, UNK
  6. GLYBURIDE [Concomitant]
     Dosage: 1.25 mg, UNK
  7. HYDROXYCHLOROQUINE [Concomitant]
     Dosage: 200 mg, UNK
  8. HYDROCHLOROTH [Concomitant]
     Dosage: 25 mg, UNK
  9. FLONASE [Concomitant]
     Dosage: 0.05 %, UNK
  10. ADVAIR UNSPEC [Concomitant]
     Dosage: AER 100/50
  11. FOLIC ACID [Concomitant]
     Dosage: UNK
  12. METFORMIN [Concomitant]
     Dosage: 1000 mg, UNK

REACTIONS (1)
  - Tooth infection [Unknown]
